FAERS Safety Report 10364772 (Version 3)
Quarter: 2014Q4

REPORT INFORMATION
  Report Type: Report from Study
  Country: JP (occurrence: JP)
  Receive Date: 20140806
  Receipt Date: 20141222
  Transmission Date: 20150528
  Serious: Yes (Other)
  Sender: FDA-Public Use
  Company Number: JP-JNJFOC-20140800785

PATIENT
  Age: 63 Year
  Sex: Male
  Weight: 72 kg

DRUGS (10)
  1. SOVRIAD [Suspect]
     Active Substance: SIMEPREVIR
     Indication: CHRONIC HEPATITIS C
     Route: 048
     Dates: start: 20140304, end: 20140602
  2. PEGINTRON [Suspect]
     Active Substance: PEGINTERFERON ALFA-2B
     Indication: CHRONIC HEPATITIS C
     Route: 058
     Dates: start: 20140304, end: 20140311
  3. PEGINTRON [Suspect]
     Active Substance: PEGINTERFERON ALFA-2B
     Indication: CHRONIC HEPATITIS C
     Route: 058
     Dates: start: 20140318, end: 20140811
  4. LOXOPROFEN [Concomitant]
     Active Substance: LOXOPROFEN
     Indication: PROPHYLAXIS
     Route: 048
     Dates: start: 20140304, end: 20140907
  5. LIVOSTIN OPHTHALMIC DROPS [Concomitant]
     Indication: SEASONAL ALLERGY
     Dosage: 1 DROP AT A TIME
     Route: 031
     Dates: start: 20140304
  6. RIBAVIRIN. [Suspect]
     Active Substance: RIBAVIRIN
     Indication: CHRONIC HEPATITIS C
     Route: 048
     Dates: start: 20140304, end: 20140817
  7. MUCOSTA [Concomitant]
     Active Substance: REBAMIPIDE
     Indication: PROPHYLAXIS
     Route: 048
     Dates: start: 20140304, end: 20140907
  8. PEGINTRON [Suspect]
     Active Substance: PEGINTERFERON ALFA-2B
     Indication: CHRONIC HEPATITIS C
     Route: 058
     Dates: start: 20140318, end: 20140811
  9. JUZENTAIHOTO [Concomitant]
     Indication: PROPHYLAXIS
     Route: 048
     Dates: start: 20140304, end: 20140817
  10. PEGINTRON [Suspect]
     Active Substance: PEGINTERFERON ALFA-2B
     Indication: CHRONIC HEPATITIS C
     Route: 058
     Dates: start: 20140304, end: 20140311

REACTIONS (8)
  - White blood cell count decreased [Recovered/Resolved]
  - Hyperuricaemia [Recovering/Resolving]
  - Anal fistula [Recovered/Resolved]
  - Insomnia [Recovering/Resolving]
  - Platelet count decreased [Recovering/Resolving]
  - Incorrect drug administration duration [Unknown]
  - Rash [Recovering/Resolving]
  - Decreased appetite [Recovering/Resolving]

NARRATIVE: CASE EVENT DATE: 20140310
